FAERS Safety Report 5225017-9 (Version None)
Quarter: 2007Q1

REPORT INFORMATION
  Report Type: 
  Country: None (occurrence: None)
  Receive Date: 20070126
  Receipt Date: 20070115
  Transmission Date: 20070707
  Serious: Yes (Other)
  Sender: FDA-Public Use
  Company Number: TUK2007A00007

PATIENT
  Sex: Male

DRUGS (6)
  1. ACTOS [Suspect]
     Indication: DRUG USE FOR UNKNOWN INDICATION
     Dosage: 30 MG ORAL
     Route: 048
     Dates: start: 20060717
  2. INFLUENZA (SPLIT VIRION, INACTIVATED) (INFLUENZA VACCINE) [Concomitant]
  3. METFORMIN HCL [Concomitant]
  4. PNEUMOVAX II VACCINE (PNEUMOCOCCAL VACCINE) [Concomitant]
  5. RAMIPRIL [Concomitant]
  6. SIMVASTATIN [Concomitant]

REACTIONS (1)
  - GYNAECOMASTIA [None]
